FAERS Safety Report 7879993-6 (Version None)
Quarter: 2011Q4

REPORT INFORMATION
  Report Type: 
  Country: None (occurrence: None)
  Receive Date: 20111101
  Receipt Date: 20111031
  Transmission Date: 20120403
  Serious: Yes (Other)
  Sender: FDA-Public Use
  Company Number: BR-B.I. PHARMACEUTICALS,INC./RIDGEFIELD-2011-BR-01184BR

PATIENT
  Sex: Female

DRUGS (2)
  1. MEDICATIONS NOT FURTHER SPECIFIED [Concomitant]
  2. CLONIDINE HYDROCHLORIDE [Suspect]

REACTIONS (4)
  - NERVOUSNESS [None]
  - OEDEMA PERIPHERAL [None]
  - DEPRESSION [None]
  - CEREBROVASCULAR ACCIDENT [None]
